FAERS Safety Report 10201149 (Version 1)
Quarter: 2014Q2

REPORT INFORMATION
  Report Type: Spontaneous
  Country: US (occurrence: US)
  Receive Date: 20140528
  Receipt Date: 20140528
  Transmission Date: 20141212
  Serious: No
  Sender: FDA-Public Use
  Company Number: US-PFIZER INC-2014144017

PATIENT
  Age: 18 Year
  Sex: Female
  Weight: 56.69 kg

DRUGS (4)
  1. AZITHROMYCIN [Suspect]
     Indication: EAR INFECTION
     Dosage: UNK, DAILY
     Dates: start: 20140422, end: 20140522
  2. MIDODRINE [Concomitant]
     Indication: POSTURAL ORTHOSTATIC TACHYCARDIA SYNDROME
     Dosage: 5 MG, 3X/DAY
  3. SODIUM CHLORIDE [Concomitant]
     Indication: POSTURAL ORTHOSTATIC TACHYCARDIA SYNDROME
     Dosage: 2 MG, 2X/DAY
  4. FLUDROCORTISONE [Concomitant]
     Indication: POSTURAL ORTHOSTATIC TACHYCARDIA SYNDROME
     Dosage: 0.1 MG, DAILY

REACTIONS (2)
  - Urticaria [Not Recovered/Not Resolved]
  - Rash [Not Recovered/Not Resolved]
